FAERS Safety Report 4891237-6 (Version None)
Quarter: 2006Q1

REPORT INFORMATION
  Report Type: 
  Country: None (occurrence: None)
  Receive Date: 20060123
  Receipt Date: 20060111
  Transmission Date: 20060701
  Serious: Yes (Death)
  Sender: FDA-Public Use
  Company Number: 33584

PATIENT
  Age: 62 Year
  Sex: Female

DRUGS (4)
  1. FLUORESCITE 10% [Suspect]
     Indication: ANGIOGRAM
     Dosage: 5 ML ONCE IV
     Route: 042
     Dates: start: 20060110, end: 20060110
  2. CARBAZOCHROME SODIUM SULFONATE [Concomitant]
  3. KALLIDINOGENASE [Concomitant]
  4. HYALURONATE SODIUM [Concomitant]

REACTIONS (1)
  - ANAPHYLACTIC SHOCK [None]
